FAERS Safety Report 14543982 (Version 2)
Quarter: 2018Q1

REPORT INFORMATION
  Report Type: Report from Study
  Country: US (occurrence: US)
  Receive Date: 20180216
  Receipt Date: 20180227
  Transmission Date: 20180509
  Serious: No
  Sender: FDA-Public Use
  Company Number: US-009507513-1801USA007916

PATIENT
  Age: 30 Year
  Sex: Female
  Weight: 74.38 kg

DRUGS (1)
  1. IMPLANON [Suspect]
     Active Substance: ETONOGESTREL
     Indication: CONTRACEPTION
     Dosage: STRENGTH: 68 MG; 1 IMPLANT, UNK
     Route: 059
     Dates: start: 20180102

REACTIONS (2)
  - Implant site pain [Not Recovered/Not Resolved]
  - Implant site reaction [Not Recovered/Not Resolved]

NARRATIVE: CASE EVENT DATE: 20180102
